FAERS Safety Report 23351259 (Version 1)
Quarter: 2023Q4

REPORT INFORMATION
  Report Type: Spontaneous
  Country: US (occurrence: US)
  Receive Date: 20231229
  Receipt Date: 20231229
  Transmission Date: 20240110
  Serious: No
  Sender: FDA-Public Use
  Company Number: US-Nobelpharma America, LLC-NPA-2023-02450

PATIENT
  Sex: Female

DRUGS (1)
  1. HYFTOR [Suspect]
     Active Substance: SIROLIMUS
     Dosage: APPLY 1 APPLICATION TOPICALLY IN THE MORNING AND AT BEDTIME
     Dates: start: 20231129

REACTIONS (1)
  - Glossodynia [Unknown]
